FAERS Safety Report 21527380 (Version 1)
Quarter: 2022Q4

REPORT INFORMATION
  Report Type: Spontaneous
  Country: US (occurrence: US)
  Receive Date: 20221031
  Receipt Date: 20221031
  Transmission Date: 20230113
  Serious: No
  Sender: FDA-Public Use
  Company Number: US-ALK-ABELLO A/S-2022AA003396

PATIENT

DRUGS (10)
  1. ALTERNARIA ALTERNATA [Suspect]
     Active Substance: ALTERNARIA ALTERNATA
     Indication: Skin test
  2. ASPERGILLUS FUMIGATUS [Suspect]
     Active Substance: ASPERGILLUS FUMIGATUS
     Indication: Skin test
  3. CLADOSPORIUM CLADOSPORIOIDES [Suspect]
     Active Substance: CLADOSPORIUM CLADOSPORIOIDES
     Indication: Skin test
  4. PENICILLIUM NOTATUM [Suspect]
     Active Substance: PENICILLIUM CHRYSOGENUM VAR. CHRYSOGENUM
     Indication: Skin test
  5. SAROCLADIUM STRICTUM [Suspect]
     Active Substance: SAROCLADIUM STRICTUM
     Indication: Skin test
  6. HELMINTHOSPORIUM SOLANI [Suspect]
     Active Substance: HELMINTHOSPORIUM SOLANI
     Indication: Skin test
  7. GIBBERELLA ZEAE [Suspect]
     Active Substance: GIBBERELLA ZEAE
     Indication: Skin test
  8. EPICOCCUM NIGRUM [Suspect]
     Active Substance: EPICOCCUM NIGRUM
     Indication: Skin test
  9. CANDIDA ALBICANS [Suspect]
     Active Substance: CANDIDA ALBICANS
     Indication: Skin test
  10. MUCOR PLUMBEUS [Suspect]
     Active Substance: MUCOR PLUMBEUS
     Indication: Skin test

REACTIONS (1)
  - False negative investigation result [Unknown]
